FAERS Safety Report 11864065 (Version 3)
Quarter: 2016Q3

REPORT INFORMATION
  Report Type: Report from Study
  Country: US (occurrence: US)
  Receive Date: 20151223
  Receipt Date: 20160928
  Transmission Date: 20161109
  Serious: Yes (Hospitalization, Other)
  Sender: FDA-Public Use
  Company Number: US-009507513-1512USA010972

PATIENT
  Age: 18 Year
  Sex: Male
  Weight: 109 kg

DRUGS (14)
  1. CYCLOPHOSPHAMIDE. [Suspect]
     Active Substance: CYCLOPHOSPHAMIDE
     Dosage: 200 MG/M2 IV OVER 15-30 MINUTES ON DAYS 1-5 (CYCLE 2, CYCLE=21 DAYS)
     Route: 042
     Dates: start: 20150929, end: 20151003
  2. CYTARABINE. [Suspect]
     Active Substance: CYTARABINE
     Dosage: 150 MG/M2 IV OVER 1-30 MINUTES EVERY 12 HOURS ON DAYS 4 AND 5 (TOTAL 4 DOSES) (CYCLE 1, CYCLE= 21 DA
     Route: 037
     Dates: start: 20150911, end: 20150913
  3. HYDROCORTISONE ACETATE. [Suspect]
     Active Substance: HYDROCORTISONE ACETATE
     Indication: ANAPLASTIC LARGE CELL LYMPHOMA T- AND NULL-CELL TYPES
     Dosage: 7.5-12 MG ON DAY 1 (AGE BASED DOSING) (PRO-PHASE, CYCE=5 DAYS)
     Route: 037
     Dates: start: 20150903, end: 20150903
  4. CRIZOTINIB [Suspect]
     Active Substance: CRIZOTINIB
     Dosage: AT UNSPECIFIED REDUCED DOSE, CYCLICAL
     Route: 048
     Dates: start: 2015
  5. METHOTREXATE SODIUM. [Suspect]
     Active Substance: METHOTREXATE SODIUM
     Dosage: 3000 MG/M2 IV OVER 3 HOURS ON DAY 1 (CYCLE=21 DAYS)
     Route: 037
     Dates: start: 20150929
  6. DEXAMETHASONE. [Suspect]
     Active Substance: DEXAMETHASONE
     Indication: ANAPLASTIC LARGE CELL LYMPHOMA T- AND NULL-CELL TYPES
     Dosage: PRO-PHASE, 5 MG/M2, ONCE DAILY ON DAYS 1-2 (CYCLE=5 DAYS)AND 5 MG/M2 TWICE DAILY ON DAYS 3-5
     Route: 048
     Dates: start: 20150903
  7. IFOSFAMIDE. [Suspect]
     Active Substance: IFOSFAMIDE
     Indication: ANAPLASTIC LARGE CELL LYMPHOMA T- AND NULL-CELL TYPES
     Dosage: 800 MG/M2 IV OVER 60 MIN ON DAYS 1-5 (CYCLE1, CYCLE=21 DAYS)
     Route: 042
     Dates: start: 20150908, end: 20150912
  8. DEXAMETHASONE. [Suspect]
     Active Substance: DEXAMETHASONE
     Dosage: 5 MG/M2, TWICE A DAY ON DAYS 1-5 (CYCLE=21 DAYS)
     Route: 048
     Dates: start: 20150908
  9. CYCLOPHOSPHAMIDE. [Suspect]
     Active Substance: CYCLOPHOSPHAMIDE
     Indication: ANAPLASTIC LARGE CELL LYMPHOMA T- AND NULL-CELL TYPES
     Dosage: 200 MG/M2 IV OVER 15-30 MINUTES ON DAYS 1-2 (PRO-PHASE, CYCLE=5 DAYS)
     Route: 042
     Dates: start: 20150903
  10. METHOTREXATE SODIUM. [Suspect]
     Active Substance: METHOTREXATE SODIUM
     Indication: ANAPLASTIC LARGE CELL LYMPHOMA T- AND NULL-CELL TYPES
     Dosage: 7.5-12 MG ON DAY 1(AGE BASED DOSING) (PRO-PHASE, CYCLE=5 DAYS)
     Route: 037
     Dates: start: 20150903, end: 20150903
  11. DOXORUBICIN HYDROCHLORIDE. [Suspect]
     Active Substance: DOXORUBICIN HYDROCHLORIDE
     Indication: ANAPLASTIC LARGE CELL LYMPHOMA T- AND NULL-CELL TYPES
     Dosage: 25MG/M2, IV OVER 1-15 MIN ON DAYS 4 AND 5 (CYCLE 2, CYCLE=21 DAYS)
     Route: 042
     Dates: start: 20151002, end: 20151003
  12. CRIZOTINIB [Suspect]
     Active Substance: CRIZOTINIB
     Indication: ANAPLASTIC LARGE CELL LYMPHOMA T- AND NULL-CELL TYPES
     Dosage: 165 MG/M2 (ALSO REPORTED AS 250 MG) TWICE A DAY ON DAYS 1-21 (CYCLE=21 DAYS)
     Route: 048
     Dates: start: 20150908, end: 20151013
  13. CYTARABINE. [Suspect]
     Active Substance: CYTARABINE
     Indication: ANAPLASTIC LARGE CELL LYMPHOMA T- AND NULL-CELL TYPES
     Dosage: 15-24 MG ON DAY 1(AGE BASED DOSING) (PRO-PHASE, CYCLE=5 DAYS)
     Route: 037
     Dates: start: 20150903, end: 20150903
  14. VP-16 [Suspect]
     Active Substance: ETOPOSIDE
     Indication: ANAPLASTIC LARGE CELL LYMPHOMA T- AND NULL-CELL TYPES
     Dosage: 100  MG/M2 IV OVER 2 HOURS ON DAYS 4-5 (CYCLE 1, CYCLE=21 DAYS)
     Route: 042
     Dates: start: 20150911, end: 20150912

REACTIONS (7)
  - Nausea [Recovered/Resolved]
  - Stomatitis [Recovered/Resolved]
  - Enterocolitis [Recovered/Resolved]
  - Lung infection [Recovered/Resolved]
  - Hypokalaemia [Recovered/Resolved]
  - Vomiting [Recovered/Resolved]
  - Pleural effusion [Unknown]

NARRATIVE: CASE EVENT DATE: 20151007
